FAERS Safety Report 4356690-5 (Version None)
Quarter: 2004Q2

REPORT INFORMATION
  Report Type: 
  Country: None (occurrence: None)
  Receive Date: 20040511
  Receipt Date: 20040511
  Transmission Date: 20050107
  Serious: No
  Sender: FDA-Public Use
  Company Number: None

PATIENT
  Sex: Male
  Weight: 96 kg

DRUGS (4)
  1. METHOTREXATE [Suspect]
     Indication: BURKITT'S LYMPHOMA
     Dosage: 15 MG QD FOR 5 D EPIDURAL
     Route: 008
     Dates: start: 20040313, end: 20040317
  2. CYTARABINE [Suspect]
     Indication: BURKITT'S LYMPHOMA
     Dosage: 40 MG QD FOR 5 D EPIDURAL
     Route: 008
     Dates: start: 20040313, end: 20040317
  3. CYCLOPHOSPHAMIDE [Concomitant]
  4. PREDNISONE [Concomitant]

REACTIONS (5)
  - ATRIAL FIBRILLATION [None]
  - DIARRHOEA [None]
  - MUCOSAL INFLAMMATION [None]
  - PYREXIA [None]
  - SUPRAVENTRICULAR TACHYCARDIA [None]
